FAERS Safety Report 25288191 (Version 4)
Quarter: 2025Q2

REPORT INFORMATION
  Report Type: Spontaneous
  Country: US (occurrence: US)
  Receive Date: 20250509
  Receipt Date: 20250612
  Transmission Date: 20250717
  Serious: No
  Sender: LUPIN
  Company Number: US-LUPIN PHARMACEUTICALS INC.-2025-03866

PATIENT
  Age: 28 Year
  Sex: Female

DRUGS (1)
  1. VANCOMYCIN HYDROCHLORIDE [Suspect]
     Active Substance: VANCOMYCIN HYDROCHLORIDE
     Indication: Liver disorder
     Dosage: 2250 MG, QD
     Route: 065

REACTIONS (3)
  - Extra dose administered [Unknown]
  - Product use in unapproved indication [Unknown]
  - No adverse event [Unknown]
